FAERS Safety Report 23768256 (Version 2)
Quarter: 2024Q2

REPORT INFORMATION
  Report Type: Spontaneous
  Country: US (occurrence: US)
  Receive Date: 20240422
  Receipt Date: 20240607
  Transmission Date: 20240716
  Serious: No
  Sender: FDA-Public Use
  Company Number: US-HALEON-2168271

PATIENT
  Age: 77 Year

DRUGS (1)
  1. TRIAMINIC NIGHT TIME COLD AND COUGH [Suspect]
     Active Substance: DIPHENHYDRAMINE HYDROCHLORIDE\PHENYLEPHRINE HYDROCHLORIDE
     Indication: Cough

REACTIONS (1)
  - Product use issue [Unknown]
